FAERS Safety Report 7204021-5 (Version None)
Quarter: 2010Q4

REPORT INFORMATION
  Report Type: 
  Country: None (occurrence: None)
  Receive Date: 20101230
  Receipt Date: 20101216
  Transmission Date: 20110411
  Serious: Yes (Other)
  Sender: FDA-Public Use
  Company Number: PHHY2010PL87304

PATIENT

DRUGS (3)
  1. FLUOROURACIL [Suspect]
     Indication: COLON CANCER
     Dosage: 1700
     Route: 042
  2. OXALIPLATIN [Concomitant]
     Indication: COLON CANCER
     Dosage: 150
     Route: 042
     Dates: start: 20101129, end: 20101129
  3. LEVOFOLIC [Concomitant]
     Indication: COLON CANCER
     Dosage: 175
     Route: 042

REACTIONS (5)
  - ASTHENIA [None]
  - BLOOD PRESSURE DECREASED [None]
  - BRADYCARDIA [None]
  - DYSPNOEA [None]
  - HYPOTONIA [None]
